FAERS Safety Report 11703546 (Version 1)
Quarter: 2015Q4

REPORT INFORMATION
  Report Type: Spontaneous
  Country: US (occurrence: US)
  Receive Date: 20151105
  Receipt Date: 20151105
  Transmission Date: 20160304
  Serious: No
  Sender: FDA-Public Use
  Company Number: US-AMGEN-USASP2015116067

PATIENT
  Age: 54 Year
  Sex: Male

DRUGS (7)
  1. MSM [Concomitant]
     Active Substance: DIMETHYL SULFONE
     Dosage: UNK
  2. MELATONIN [Concomitant]
     Active Substance: MELATONIN
     Dosage: UNK
  3. VALERIAN ROOT                      /01561601/ [Concomitant]
     Dosage: UNK
  4. ASPIRIN E.C [Concomitant]
     Active Substance: ASPIRIN
     Dosage: LOW DOSE
  5. HYDROCHLOROTHIAZIDE AND LISINOPRIL [Concomitant]
     Active Substance: HYDROCHLOROTHIAZIDE\LISINOPRIL
     Dosage: UNK
  6. LISINOPRIL. [Concomitant]
     Active Substance: LISINOPRIL
     Dosage: UNK
     Dates: start: 20150929, end: 20151030
  7. ENBREL [Suspect]
     Active Substance: ETANERCEPT
     Indication: RHEUMATOID ARTHRITIS
     Dosage: 50 MG, QWK
     Route: 058

REACTIONS (3)
  - Joint swelling [Unknown]
  - Injection site reaction [Unknown]
  - Pain [Unknown]
